FAERS Safety Report 6240539-X (Version None)
Quarter: 2009Q2

REPORT INFORMATION
  Report Type: 
  Country: None (occurrence: None)
  Receive Date: 20090623
  Receipt Date: 20080905
  Transmission Date: 20091009
  Serious: No
  Sender: FDA-Public Use
  Company Number: US-ASTRAZENECA-2008UW18376

PATIENT
  Age: 51 Year
  Sex: Female
  Weight: 117.9 kg

DRUGS (13)
  1. PULMICORT RESPULES [Suspect]
     Indication: CHRONIC OBSTRUCTIVE PULMONARY DISEASE
     Dosage: 0.5 MG/2ML TWICE DAILY
     Route: 055
  2. PULMICORT RESPULES [Suspect]
     Indication: ASTHMA
     Dosage: 0.5 MG/2ML TWICE DAILY
     Route: 055
  3. PULMICORT RESPULES [Suspect]
     Indication: EMPHYSEMA
     Dosage: 0.5 MG/2ML TWICE DAILY
     Route: 055
  4. NEXIUM [Concomitant]
     Route: 048
  5. CELEXA [Concomitant]
  6. ATIVAN [Concomitant]
  7. CARDIZEM [Concomitant]
  8. SYNTHROID [Concomitant]
  9. LIPITOR [Concomitant]
  10. TRICOR [Concomitant]
  11. METAFORM [Concomitant]
  12. ALBUTEROL [Concomitant]
  13. VITAMINS [Concomitant]

REACTIONS (5)
  - AGGRESSION [None]
  - ANXIETY [None]
  - BLOOD GLUCOSE DECREASED [None]
  - FEELING ABNORMAL [None]
  - MOOD SWINGS [None]
